FAERS Safety Report 9265557 (Version 1)
Quarter: 2013Q2

REPORT INFORMATION
  Report Type: Spontaneous
  Country: US (occurrence: US)
  Receive Date: 20130501
  Receipt Date: 20130501
  Transmission Date: 20140414
  Serious: No
  Sender: FDA-Public Use
  Company Number: US-BAYER-2013-053660

PATIENT
  Age: 64 Year
  Sex: Male
  Weight: 78.01 kg

DRUGS (14)
  1. BETASERON [Suspect]
     Dosage: 0.3 MG, QOD
     Route: 058
  2. GLUCOSAMINE [Concomitant]
  3. MAGNESIUM [Concomitant]
     Dosage: 300 MG, UNK
  4. BETACAROTENE [Concomitant]
     Dosage: 1000, UNIT
  5. VITAMIN C [Concomitant]
     Dosage: 500 UNK, UNK
  6. VITAMIN D [Concomitant]
     Dosage: 1000, UNIT
  7. VITAMIN E [Concomitant]
     Dosage: 400, UNIT
  8. DIGOXIN [Concomitant]
     Dosage: 0.125 MG, UNK
  9. DILTIAZEM [Concomitant]
     Dosage: 120 MG, UNK
  10. DIOVAN [Concomitant]
     Dosage: 160 MG, UNK
  11. OXYBUTIN [Concomitant]
  12. WELCHOL [Concomitant]
     Dosage: 3.7 MG, UNK
  13. ALEVE CAPLET [Concomitant]
     Dosage: 220 MG, UNK
  14. ASPIRIN [Concomitant]

REACTIONS (2)
  - Night sweats [Unknown]
  - Chills [Unknown]
